FAERS Safety Report 17569980 (Version 1)
Quarter: 2020Q1

REPORT INFORMATION
  Report Type: Spontaneous
  Country: US (occurrence: US)
  Receive Date: 20200316
  Receipt Date: 20200316
  Transmission Date: 20200409
  Serious: No
  Sender: FDA-Public Use
  Company Number: None

PATIENT
  Age: 50 Year
  Sex: Male

DRUGS (1)
  1. LORLATINIB (LORLATINIB 100MG TAB) [Suspect]
     Active Substance: LORLATINIB
     Indication: HYPERLIPIDAEMIA
     Route: 048
     Dates: start: 20190314

REACTIONS (1)
  - Hypercholesterolaemia [None]

NARRATIVE: CASE EVENT DATE: 20190425
